FAERS Safety Report 11926929 (Version 1)
Quarter: 2016Q1

REPORT INFORMATION
  Report Type: Spontaneous
  Country: US (occurrence: US)
  Receive Date: 20160119
  Receipt Date: 20160119
  Transmission Date: 20160526
  Serious: Yes (Hospitalization)
  Sender: FDA-Public Use
  Company Number: US-PFIZER INC-2016012177

PATIENT
  Age: 68 Year
  Sex: Male
  Weight: 82 kg

DRUGS (1)
  1. TIKOSYN [Suspect]
     Active Substance: DOFETILIDE
     Indication: ARRHYTHMIA
     Dosage: 500 UG, 2X/DAY, 500MCG CAPSULE BY MOUTH EVERY 12 HOURS
     Route: 048
     Dates: start: 20151226, end: 20160102

REACTIONS (3)
  - Weight decreased [Unknown]
  - Infection [Not Recovered/Not Resolved]
  - Gastrointestinal ulcer haemorrhage [Recovering/Resolving]

NARRATIVE: CASE EVENT DATE: 201512
